FAERS Safety Report 4292755-4 (Version None)
Quarter: 2004Q1

REPORT INFORMATION
  Report Type: 
  Country: None (occurrence: None)
  Receive Date: 20040126
  Receipt Date: 20030918
  Transmission Date: 20041129
  Serious: No
  Sender: FDA-Public Use
  Company Number: USA030946299

PATIENT
  Age: 83 Year
  Sex: Female
  Weight: 46 kg

DRUGS (10)
  1. FORTEO [Suspect]
     Indication: OSTEOPOROSIS
     Dates: start: 20030903, end: 20030912
  2. SYNTHROID [Concomitant]
  3. PLAVIX [Concomitant]
  4. ISOSORBIDE [Concomitant]
  5. TOPROL-XL [Concomitant]
  6. ASPIRIN [Concomitant]
  7. FOLTX [Concomitant]
  8. AVALIDE [Concomitant]
  9. VITAMIN B6 [Concomitant]
  10. VITAMIN B-12 [Concomitant]

REACTIONS (11)
  - ASTHENIA [None]
  - DEPRESSION [None]
  - DIARRHOEA [None]
  - DRUG HYPERSENSITIVITY [None]
  - HIP ARTHROPLASTY [None]
  - HIP FRACTURE [None]
  - MALAISE [None]
  - MOVEMENT DISORDER [None]
  - MUSCLE CRAMP [None]
  - MUSCULOSKELETAL DISCOMFORT [None]
  - PAIN IN EXTREMITY [None]
